FAERS Safety Report 16316727 (Version 9)
Quarter: 2020Q2

REPORT INFORMATION
  Report Type: Spontaneous
  Country: DE (occurrence: DE)
  Receive Date: 20190515
  Receipt Date: 20200617
  Transmission Date: 20200713
  Serious: Yes (Hospitalization, Other)
  Sender: FDA-Public Use
  Company Number: PHHY2019DE108860

PATIENT
  Sex: Male
  Weight: 76 kg

DRUGS (28)
  1. VALSARTAN - 1 A PHARMA PLUS 160 MG/12,5 MG FILMTABLETTEN [Suspect]
     Active Substance: HYDROCHLOROTHIAZIDE\VALSARTAN
     Indication: HYPERTENSION
     Dosage: 1 DF, UNK (160MG/25MG)
     Route: 065
     Dates: start: 201402, end: 20150716
  2. VALSARTAN. [Concomitant]
     Active Substance: VALSARTAN
     Indication: HYPERTENSION
     Dosage: 160 MG
     Route: 065
  3. ALLOPURINOL. [Concomitant]
     Active Substance: ALLOPURINOL
     Indication: BLOOD URIC ACID INCREASED
     Dosage: 100 MG, QD
     Route: 065
     Dates: start: 201510
  4. XARELTO [Concomitant]
     Active Substance: RIVAROXABAN
     Dosage: UNK
     Route: 065
     Dates: start: 201802
  5. EMSELEX [Concomitant]
     Active Substance: DARIFENACIN HYDROBROMIDE
     Dosage: 7.5 MG, QD
     Route: 065
  6. ELIQUIS [Concomitant]
     Active Substance: APIXABAN
     Indication: ARTERIOSCLEROSIS
     Dosage: 2.5 MG, BID (MORNING AND EVENING)
     Route: 048
     Dates: start: 2017
  7. VESIKUR [Concomitant]
     Active Substance: SOLIFENACIN SUCCINATE
     Indication: MICTURITION DISORDER
     Dosage: 10 MG, QD (MORNING)
     Route: 048
     Dates: start: 20180220
  8. SIMVASTATIN. [Concomitant]
     Active Substance: SIMVASTATIN
     Indication: HYPERLIPIDAEMIA
     Dosage: 40 MG, QD (EVENING)
     Route: 065
     Dates: start: 2014
  9. PANTOPRAZOLE [Concomitant]
     Active Substance: PANTOPRAZOLE
     Indication: PRODUCT USED FOR UNKNOWN INDICATION
     Dosage: 40 MG, QD (MORNING)
     Route: 065
     Dates: start: 2014
  10. PANTOPRAZOLE [Concomitant]
     Active Substance: PANTOPRAZOLE
     Dosage: 20 MG, QD
     Route: 065
  11. SPASMEX [Concomitant]
     Indication: URINARY INCONTINENCE
     Dosage: 15 MG, TID (2/3 X 45 MG, MORNING)
     Route: 065
     Dates: start: 201701
  12. SPASMEX [Concomitant]
     Dosage: 45 MG, QD (1/3 X 45 MG, MORNING)
     Route: 065
  13. BEROTEC N [Concomitant]
     Active Substance: FENOTEROL HYDROBROMIDE
     Indication: CHRONIC OBSTRUCTIVE PULMONARY DISEASE
     Dosage: 100 UG, PRN
     Route: 065
  14. XARELTO [Concomitant]
     Active Substance: RIVAROXABAN
     Indication: PRODUCT USED FOR UNKNOWN INDICATION
     Dosage: UNK
     Route: 065
     Dates: start: 2014, end: 201802
  15. XARELTO [Concomitant]
     Active Substance: RIVAROXABAN
     Dosage: UNK
     Route: 065
     Dates: start: 20180403
  16. EMSELEX [Concomitant]
     Active Substance: DARIFENACIN HYDROBROMIDE
     Indication: PRODUCT USED FOR UNKNOWN INDICATION
     Dosage: 15 MG, QD (MORNING)
     Route: 065
     Dates: start: 2017
  17. BETMIGA [Concomitant]
     Active Substance: MIRABEGRON
     Indication: PRODUCT USED FOR UNKNOWN INDICATION
     Dosage: 50 MG, QD (EVENING)
     Route: 065
  18. CANDESARTAN. [Concomitant]
     Active Substance: CANDESARTAN
     Indication: PRODUCT USED FOR UNKNOWN INDICATION
     Dosage: 4 MG, QD (MORNING)
     Route: 065
  19. ULTIBRO BREEZHALER [Concomitant]
     Active Substance: GLYCOPYRRONIUM\INDACATEROL
     Indication: CHRONIC OBSTRUCTIVE PULMONARY DISEASE
     Dosage: 1 DF, QD (85 ?G /43 ?G)
     Route: 065
  20. ACETYLSALICYLIC ACID [Concomitant]
     Active Substance: ASPIRIN
     Indication: PLATELET AGGREGATION INHIBITION
     Dosage: 100 MG, QD
     Route: 065
     Dates: start: 2015
  21. FERRO-SANOL DUODENAL [Concomitant]
     Active Substance: FERROUS GLYCINE SULFATE
     Indication: PRODUCT USED FOR UNKNOWN INDICATION
     Dosage: 100 OT, QD (MORNING)
     Route: 065
     Dates: start: 2014
  22. DICLOFENAC [Concomitant]
     Active Substance: DICLOFENAC
     Indication: PRODUCT USED FOR UNKNOWN INDICATION
     Dosage: UNK
     Route: 065
  23. VALSARTAN - 1 A PHARMA 80 MG FILMTABLETTEN [Suspect]
     Active Substance: VALSARTAN
     Dosage: 0.5 DF, QD (1/2 OF 160 MG) IN MORNING
     Route: 048
     Dates: start: 20180716
  24. HYDROCHLOROTHIAZIDE. [Concomitant]
     Active Substance: HYDROCHLOROTHIAZIDE
     Indication: PRODUCT USED FOR UNKNOWN INDICATION
     Dosage: 25 MG, QD
     Route: 065
     Dates: start: 201602
  25. VALSARTAN - 1 A PHARMA 80 MG FILMTABLETTEN [Suspect]
     Active Substance: VALSARTAN
     Indication: HYPERTENSION
     Dosage: 80 MG, QD (HALF OF 160MG MORNING)
     Route: 065
     Dates: start: 201402, end: 201805
  26. XARELTO [Concomitant]
     Active Substance: RIVAROXABAN
     Dosage: UNK
     Route: 065
     Dates: start: 201803
  27. DEKRISTOL [Concomitant]
     Active Substance: CHOLECALCIFEROL
     Indication: PRODUCT USED FOR UNKNOWN INDICATION
     Dosage: 200000 IU, QMO (IN THE MORNINGS ON 15TH)
     Route: 048
  28. AMLODIPINE [Concomitant]
     Active Substance: AMLODIPINE BESYLATE
     Indication: PRODUCT USED FOR UNKNOWN INDICATION
     Dosage: 5 MG, BID
     Route: 065
     Dates: start: 201602

REACTIONS (45)
  - Microcytic anaemia [Unknown]
  - Benign prostatic hyperplasia [Unknown]
  - Dyspepsia [Unknown]
  - Blood uric acid increased [Unknown]
  - Cerebrovascular accident [Recovered/Resolved with Sequelae]
  - Haematuria [Unknown]
  - Nocturia [Unknown]
  - Hypercholesterolaemia [Unknown]
  - Urethritis [Unknown]
  - Pollakiuria [Unknown]
  - Diplopia [Unknown]
  - Bladder tamponade [Recovered/Resolved]
  - Cognitive disorder [Unknown]
  - General physical health deterioration [Recovering/Resolving]
  - Urinary retention [Unknown]
  - Hypercalcaemia [Unknown]
  - Dysstasia [Recovered/Resolved]
  - Dysphonia [Unknown]
  - Urinary tract infection [Unknown]
  - Cerebellar infarction [Unknown]
  - Cystitis noninfective [Unknown]
  - Lower urinary tract symptoms [Unknown]
  - Chronic gastritis [Unknown]
  - Hyperuricaemia [Unknown]
  - Urinary incontinence [Recovering/Resolving]
  - Presbyphonia [Unknown]
  - Bladder cancer recurrent [Recovered/Resolved]
  - Dysarthria [Unknown]
  - Neurologic neglect syndrome [Unknown]
  - Glomerular filtration rate decreased [Unknown]
  - Type 2 diabetes mellitus [Unknown]
  - Cerebral ischaemia [Unknown]
  - Bladder spasm [Recovered/Resolved]
  - Bladder transitional cell carcinoma [Unknown]
  - Dehydration [Unknown]
  - Renal failure [Unknown]
  - Bladder transitional cell carcinoma [Recovering/Resolving]
  - Chronic kidney disease [Unknown]
  - Cerebrovascular accident [Unknown]
  - Iron deficiency [Unknown]
  - Prostatitis [Unknown]
  - Aortic valve sclerosis [Unknown]
  - Necrosis [Unknown]
  - Haematinuria [Unknown]
  - Cyst [Unknown]

NARRATIVE: CASE EVENT DATE: 2014
